FAERS Safety Report 9118671 (Version 1)
Quarter: 2013Q1

REPORT INFORMATION
  Report Type: Spontaneous
  Country: US (occurrence: US)
  Receive Date: 20130226
  Receipt Date: 20130226
  Transmission Date: 20140127
  Serious: No
  Sender: FDA-Public Use
  Company Number: US-BIOGENIDEC-2013BI017240

PATIENT
  Age: 44 Year
  Sex: Female

DRUGS (1)
  1. AVONEX [Suspect]
     Indication: MULTIPLE SCLEROSIS
     Route: 030
     Dates: start: 20071104

REACTIONS (5)
  - Ear pain [Unknown]
  - Influenza like illness [Recovered/Resolved]
  - Pain [Recovered/Resolved]
  - Night sweats [Recovered/Resolved]
  - Vomiting [Recovered/Resolved]
